FAERS Safety Report 5814381-5 (Version None)
Quarter: 2008Q3

REPORT INFORMATION
  Report Type: 
  Country: None (occurrence: None)
  Receive Date: 20080718
  Receipt Date: 20080710
  Transmission Date: 20090109
  Serious: Yes (Hospitalization)
  Sender: FDA-Public Use
  Company Number: JP-BRISTOL-MYERS SQUIBB COMPANY-14252969

PATIENT
  Age: 56 Year
  Sex: Female

DRUGS (9)
  1. ENDOXAN [Suspect]
     Indication: BREAST CANCER
     Route: 041
     Dates: start: 20080606, end: 20080606
  2. EPIRUBICIN HCL [Suspect]
     Indication: BREAST CANCER
     Route: 041
     Dates: start: 20080606, end: 20080606
  3. PL [Concomitant]
     Indication: INFECTION PROPHYLAXIS
     Dates: start: 20080620, end: 20080621
  4. ZOFRAN [Concomitant]
     Indication: PROPHYLAXIS
     Dates: start: 20080606, end: 20080606
  5. DEXAMETHASONE SODIUM PHOSPHATE [Concomitant]
     Dates: start: 20080606, end: 20080606
  6. CRAVIT [Concomitant]
     Indication: INFECTION PROPHYLAXIS
     Dates: start: 20080606, end: 20080627
  7. ISODINE [Concomitant]
     Indication: INFECTION PROPHYLAXIS
     Dates: start: 20080620, end: 20080627
  8. MEIACT [Concomitant]
     Dates: start: 20080606, end: 20080609
  9. DECADRON [Concomitant]
     Indication: PROPHYLAXIS

REACTIONS (2)
  - OROPHARYNGEAL PAIN [None]
  - PANCYTOPENIA [None]
